FAERS Safety Report 9438578 (Version 1)
Quarter: 2013Q3

REPORT INFORMATION
  Report Type: Spontaneous
  Country: US (occurrence: US)
  Receive Date: 20130802
  Receipt Date: 20130802
  Transmission Date: 20140515
  Serious: Yes (Death, Other)
  Sender: FDA-Public Use
  Company Number: US-CELGENEUS-163-20785-13074587

PATIENT
  Age: 65 Year
  Sex: Male

DRUGS (1)
  1. THALOMID [Suspect]
     Indication: MYELOFIBROSIS
     Dosage: 50 MILLIGRAM
     Route: 048
     Dates: start: 201306

REACTIONS (3)
  - Death [Fatal]
  - Cardiac disorder [Unknown]
  - Pulmonary thrombosis [Unknown]
